FAERS Safety Report 5379934-X (Version None)
Quarter: 2007Q3

REPORT INFORMATION
  Report Type: 
  Country: None (occurrence: None)
  Receive Date: 20070706
  Receipt Date: 20070626
  Transmission Date: 20080115
  Serious: Yes (Other)
  Sender: FDA-Public Use
  Company Number: CA-NOVOPROD-264491

PATIENT
  Age: 73 Year
  Sex: Male
  Weight: 80 kg

DRUGS (7)
  1. NOVOMIX PENFILL 3 ML [Suspect]
     Indication: INSULIN-REQUIRING TYPE II DIABETES MELLITUS
     Dosage: 104 IU, QD
     Route: 058
     Dates: start: 20070410, end: 20070529
  2. CRESTOR [Concomitant]
     Dosage: 20 MG, UNK
     Route: 048
     Dates: start: 20030101
  3. QUININE SULFATE [Concomitant]
     Dosage: 300 MG, UNK
     Route: 048
     Dates: start: 20000101
  4. OMEPRAZOLE [Concomitant]
     Dosage: 20 MG, UNK
     Route: 048
     Dates: start: 19990101
  5. VERAPAMIL [Concomitant]
     Dosage: 240 MG, UNK
     Route: 048
     Dates: start: 20020101
  6. FUROSEMIDE [Concomitant]
     Dosage: 120 MG, QD
     Route: 048
     Dates: start: 20040101
  7. FOSINOPRIL SODIUM [Concomitant]
     Dosage: 20 MG, QD
     Route: 048
     Dates: start: 20030101

REACTIONS (1)
  - HYPOGLYCAEMIC UNCONSCIOUSNESS [None]
